FAERS Safety Report 4551470-X (Version None)
Quarter: 2005Q1

REPORT INFORMATION
  Report Type: 
  Country: None (occurrence: None)
  Receive Date: 20050111
  Receipt Date: 20041228
  Transmission Date: 20050727
  Serious: Yes (Hospitalization)
  Sender: FDA-Public Use
  Company Number: FABR-10889

PATIENT
  Age: 45 Year
  Sex: Male
  Weight: 66.1 kg

DRUGS (6)
  1. FABRAZYME [Suspect]
     Indication: FABRY'S DISEASE
     Dosage: 70 MG Q2WKS IV
     Route: 042
     Dates: start: 20040514
  2. NORVASC [Concomitant]
  3. TOPROL-XL [Concomitant]
  4. ALBUTEROL [Concomitant]
  5. PAXIL [Concomitant]
  6. ADVAIR DISKUS 100/50 [Concomitant]

REACTIONS (4)
  - LOSS OF CONSCIOUSNESS [None]
  - MYOCARDIAL INFARCTION [None]
  - PERITONEAL DIALYSIS [None]
  - RENAL FAILURE CHRONIC [None]
